FAERS Safety Report 18957821 (Version 6)
Quarter: 2021Q2

REPORT INFORMATION
  Report Type: Report from Study
  Country: CA (occurrence: CA)
  Receive Date: 20210302
  Receipt Date: 20210623
  Transmission Date: 20210717
  Serious: Yes (Hospitalization, Other)
  Sender: FDA-Public Use
  Company Number: NVSC2012CA000488

PATIENT
  Age: 67 Year
  Sex: Female

DRUGS (21)
  1. NOVO?BETAHISTINE [Concomitant]
     Dosage: 16 MG, BID (FOLLOWED BY 7 DAYS)
     Route: 065
  2. SANDOSTATIN LAR DEPOT [Suspect]
     Active Substance: OCTREOTIDE ACETATE
     Dosage: 50 MG, QMO (EVERY 4 WEEKS)
     Route: 030
  3. SANDOSTATIN LAR DEPOT [Suspect]
     Active Substance: OCTREOTIDE ACETATE
     Dosage: 30 MG, QMO (EVERY 4 WEEKS)
     Route: 030
  4. NOVO?BETAHISTINE [Concomitant]
     Indication: PRODUCT USED FOR UNKNOWN INDICATION
     Dosage: 16 MG, TID (1 TABLET)
     Route: 065
  5. STATEX [Concomitant]
     Indication: PRODUCT USED FOR UNKNOWN INDICATION
     Dosage: UNK
     Route: 065
  6. SANDOSTATIN LAR DEPOT [Suspect]
     Active Substance: OCTREOTIDE ACETATE
     Dosage: 50 MG, QMO (EVERY 4 WEEKS)
     Route: 030
  7. SANDOSTATIN LAR DEPOT [Suspect]
     Active Substance: OCTREOTIDE ACETATE
     Dosage: 20 MG, QMO (EVERY 4 WEEKS) (VIAL)
     Route: 030
     Dates: start: 20090512
  8. SANDOSTATIN LAR DEPOT [Suspect]
     Active Substance: OCTREOTIDE ACETATE
     Dosage: 40 MG, QMO
     Route: 030
  9. SANDOSTATIN LAR DEPOT [Suspect]
     Active Substance: OCTREOTIDE ACETATE
     Dosage: 30 MG, QMO (EVERY 4 WEEKS)
     Route: 030
     Dates: start: 20190503
  10. ACETAMINOPHEN. [Concomitant]
     Active Substance: ACETAMINOPHEN
     Indication: PRODUCT USED FOR UNKNOWN INDICATION
     Dosage: UNK
     Route: 065
  11. METOPROLOL. [Concomitant]
     Active Substance: METOPROLOL
     Indication: PRODUCT USED FOR UNKNOWN INDICATION
     Dosage: UNK
     Route: 048
  12. SANDOSTATIN LAR DEPOT [Suspect]
     Active Substance: OCTREOTIDE ACETATE
     Indication: CARCINOID TUMOUR
     Dosage: 40 MG, QMO (EVERY 4 WEEKS)
     Route: 030
     Dates: start: 20090502
  13. SANDOSTATIN LAR DEPOT [Suspect]
     Active Substance: OCTREOTIDE ACETATE
     Dosage: 30 MG, QMO (EVERY 4 WEEKS)
     Route: 030
     Dates: start: 20090512
  14. SANDOSTATIN LAR DEPOT [Suspect]
     Active Substance: OCTREOTIDE ACETATE
     Dosage: 40 MG, QMO
     Route: 030
  15. SANDOSTATIN LAR DEPOT [Suspect]
     Active Substance: OCTREOTIDE ACETATE
     Dosage: 40 MG, QMO (EVERY 4 WEEKS)
     Route: 030
  16. SANDOSTATIN LAR DEPOT [Suspect]
     Active Substance: OCTREOTIDE ACETATE
     Dosage: 40 MG, QMO
     Route: 030
  17. SANDOSTATIN LAR DEPOT [Suspect]
     Active Substance: OCTREOTIDE ACETATE
     Dosage: 40 MG, QMO (EVERY 4 WEEKS)
     Route: 030
  18. TAMSULOSIN [Concomitant]
     Active Substance: TAMSULOSIN
     Indication: PRODUCT USED FOR UNKNOWN INDICATION
     Dosage: UNK
     Route: 065
  19. SANDOSTATIN LAR DEPOT [Suspect]
     Active Substance: OCTREOTIDE ACETATE
     Dosage: 30 MG, QMO
     Route: 030
  20. SANDOSTATIN LAR DEPOT [Suspect]
     Active Substance: OCTREOTIDE ACETATE
     Dosage: 20 MG, Q4W
     Route: 030
  21. NOVO?BETAHISTINE [Concomitant]
     Dosage: 16 MG, QD (FOR 7 DAYS)
     Route: 065

REACTIONS (54)
  - Blood pressure increased [Unknown]
  - Lipoma [Unknown]
  - Aphasia [Unknown]
  - Nausea [Unknown]
  - Back pain [Unknown]
  - Nightmare [Unknown]
  - Contusion [Unknown]
  - Heart rate irregular [Unknown]
  - Eye movement disorder [Not Recovered/Not Resolved]
  - Blood pressure diastolic decreased [Unknown]
  - Blood chromogranin A increased [Unknown]
  - Balance disorder [Unknown]
  - Visual field defect [Unknown]
  - Needle issue [Not Recovered/Not Resolved]
  - Weight decreased [Unknown]
  - Nephrolithiasis [Unknown]
  - Angioedema [Unknown]
  - Hallucination [Unknown]
  - Metastases to liver [Recovering/Resolving]
  - Hot flush [Unknown]
  - Fall [Unknown]
  - Renal neoplasm [Unknown]
  - Heart rate decreased [Unknown]
  - Injection site haemorrhage [Recovering/Resolving]
  - Dizziness [Not Recovered/Not Resolved]
  - Lymphadenopathy [Unknown]
  - Oedema peripheral [Unknown]
  - Tooth abscess [Unknown]
  - Diarrhoea [Unknown]
  - Tremor [Unknown]
  - Jugular vein occlusion [Unknown]
  - Labyrinthitis [Unknown]
  - Palpitations [Unknown]
  - Diabetes mellitus [Unknown]
  - Anxiety [Unknown]
  - Vision blurred [Unknown]
  - Pain in extremity [Unknown]
  - Blood glucose increased [Unknown]
  - Cerebrovascular accident [Unknown]
  - Cold sweat [Unknown]
  - Blood pressure systolic increased [Unknown]
  - Altered state of consciousness [Unknown]
  - Fatigue [Unknown]
  - Vertigo [Unknown]
  - Tachycardia [Unknown]
  - Spinal cord compression [Unknown]
  - Sciatica [Unknown]
  - Bradycardia [Unknown]
  - Malignant neoplasm progression [Recovering/Resolving]
  - Photopsia [Unknown]
  - Tonsillitis [Unknown]
  - Headache [Unknown]
  - Pruritus [Unknown]
  - Hypersensitivity [Unknown]

NARRATIVE: CASE EVENT DATE: 20151105
